FAERS Safety Report 6706043-7 (Version None)
Quarter: 2010Q2

REPORT INFORMATION
  Report Type: 
  Country: None (occurrence: None)
  Receive Date: 20100503
  Receipt Date: 20090524
  Transmission Date: 20101027
  Serious: Yes (Other)
  Sender: FDA-Public Use
  Company Number: US-BAYER-200921338NA

PATIENT
  Age: 64 Year
  Sex: Female

DRUGS (2)
  1. NEXAVAR [Suspect]
     Indication: RENAL CELL CARCINOMA
     Dosage: TOTAL DAILY DOSE: 400 MG  UNIT DOSE: 200 MG
     Route: 048
     Dates: start: 20090502, end: 20090511
  2. HYPERTENSION MEDICATION [Concomitant]

REACTIONS (5)
  - BLISTER [None]
  - FATIGUE [None]
  - HALLUCINATION [None]
  - NAUSEA [None]
  - STOMATITIS [None]
